FAERS Safety Report 5418527-2 (Version None)
Quarter: 2007Q3

REPORT INFORMATION
  Report Type: 
  Country: None (occurrence: None)
  Receive Date: 20070817
  Receipt Date: 20070731
  Transmission Date: 20080115
  Serious: No
  Sender: FDA-Public Use
  Company Number: US-BOEHRINGER INGELHEIM PHARMACEUTICALS, INC.-2007-BP-18348BP

PATIENT
  Sex: Male

DRUGS (8)
  1. SPIRIVA [Suspect]
     Indication: CHRONIC OBSTRUCTIVE PULMONARY DISEASE
     Route: 055
     Dates: start: 20060101, end: 20070727
  2. LASIX [Concomitant]
  3. PROCARDIA XL [Concomitant]
  4. COUMADIN [Concomitant]
  5. MICARDIS [Concomitant]
  6. CHLORPROPAM [Concomitant]
  7. LIPITOR [Concomitant]
  8. COLCHICINE [Concomitant]

REACTIONS (1)
  - RASH PRURITIC [None]
